FAERS Safety Report 8900520 (Version 1)
Quarter: 2012Q4

REPORT INFORMATION
  Report Type: 
  Country: JP (occurrence: JP)
  Receive Date: 20121109
  Receipt Date: 20121109
  Transmission Date: 20130627
  Serious: Yes (Death, Other)
  Sender: FDA-Public Use
  Company Number: JP-AMGEN-JPNCT2012071561

PATIENT
  Age: 83 Year
  Sex: Female
  Weight: 46 kg

DRUGS (9)
  1. ROMIPLOSTIM - KHK [Suspect]
     Indication: IDIOPATHIC THROMBOCYTOPENIC PURPURA
     Dosage: 1 mug/kg, qd
     Route: 058
     Dates: start: 20120328, end: 20120328
  2. ROMIPLOSTIM - KHK [Suspect]
     Dosage: 2 mug/kg, qd
     Route: 058
     Dates: start: 20120404, end: 20120404
  3. ROMIPLOSTIM - KHK [Suspect]
     Dosage: 3 mug/kg, qd
     Route: 058
     Dates: start: 20120411, end: 20120509
  4. PREDNISOLONE [Concomitant]
     Indication: IDIOPATHIC THROMBOCYTOPENIC PURPURA
     Dosage: 10 mg, qd
     Route: 048
     Dates: start: 20120314, end: 20120517
  5. REVOLADE [Concomitant]
     Indication: IDIOPATHIC THROMBOCYTOPENIC PURPURA
     Dosage: 12.5 mg, UNK
     Route: 048
     Dates: start: 20120320, end: 20120327
  6. TAKEPRON [Concomitant]
     Indication: GASTROINTESTINAL HAEMORRHAGE
     Dosage: UNK
     Route: 065
  7. FESIN [Concomitant]
     Indication: ANAEMIA
     Dosage: UNK
     Route: 065
  8. FUROSEMIDE [Concomitant]
     Indication: RENAL FAILURE CHRONIC
     Dosage: UNK
     Route: 048
  9. ALDACTONE A [Concomitant]
     Indication: RENAL FAILURE CHRONIC
     Dosage: UNK UNK, UNK
     Route: 048

REACTIONS (2)
  - Urinary tract infection [Recovering/Resolving]
  - Azotaemia [Fatal]
